FAERS Safety Report 7253219-9 (Version None)
Quarter: 2011Q1

REPORT INFORMATION
  Report Type: 
  Country: None (occurrence: None)
  Receive Date: 20110129
  Receipt Date: 20100215
  Transmission Date: 20110831
  Serious: No
  Sender: FDA-Public Use
  Company Number: US-ABBOTT-10P-163-0627034-00

PATIENT
  Age: 56 Year
  Sex: Male

DRUGS (2)
  1. HUMIRA [Suspect]
     Indication: PSORIASIS
     Route: 058
     Dates: start: 20090601
  2. SINGULAIR [Concomitant]
     Indication: ASTHMA
     Dates: start: 20000101

REACTIONS (2)
  - DRY EYE [None]
  - LACRIMATION INCREASED [None]
